FAERS Safety Report 11953476 (Version 1)
Quarter: 2016Q1

REPORT INFORMATION
  Report Type: Spontaneous
  Country: US (occurrence: US)
  Receive Date: 20160126
  Receipt Date: 20160126
  Transmission Date: 20160526
  Serious: No
  Sender: FDA-Public Use
  Company Number: US-HORIZON-PEN-0014-2016

PATIENT
  Age: 63 Year
  Sex: Male

DRUGS (10)
  1. NEXIUM [Concomitant]
     Active Substance: ESOMEPRAZOLE MAGNESIUM
  2. VITAMIN D [Concomitant]
     Active Substance: CHOLECALCIFEROL
  3. JANUVIA [Concomitant]
     Active Substance: SITAGLIPTIN PHOSPHATE
  4. BABY ASPIRIN [Concomitant]
     Active Substance: ASPIRIN
  5. PENNSAID [Suspect]
     Active Substance: DICLOFENAC SODIUM
     Indication: MUSCULOSKELETAL STIFFNESS
     Dosage: 1 DF ON EACH SHOULDER QD
     Route: 061
     Dates: start: 2015
  6. CRESTOR [Concomitant]
     Active Substance: ROSUVASTATIN CALCIUM
  7. BYSTOLIC [Concomitant]
     Active Substance: NEBIVOLOL HYDROCHLORIDE
  8. ANDROGEL [Concomitant]
     Active Substance: TESTOSTERONE
  9. VESICARE [Concomitant]
     Active Substance: SOLIFENACIN SUCCINATE
  10. ZOLDIPEM [Concomitant]

REACTIONS (5)
  - Musculoskeletal pain [Unknown]
  - Application site pruritus [Recovered/Resolved]
  - Off label use [Unknown]
  - Application site pain [Recovered/Resolved]
  - Therapy cessation [Unknown]

NARRATIVE: CASE EVENT DATE: 20151218
